FAERS Safety Report 7623759-9 (Version None)
Quarter: 2011Q3

REPORT INFORMATION
  Report Type: 
  Country: None (occurrence: None)
  Receive Date: 20110720
  Receipt Date: 20110627
  Transmission Date: 20111222
  Serious: Yes (Hospitalization, Other)
  Sender: FDA-Public Use
  Company Number: JP-GLAXOSMITHKLINE-B0729722A

PATIENT
  Age: 73 Year
  Sex: Female

DRUGS (6)
  1. VALTREX [Suspect]
     Indication: HERPES ZOSTER
     Dosage: 500MG TWICE PER DAY
     Route: 048
     Dates: start: 20110124, end: 20110124
  2. KALIMATE [Concomitant]
     Indication: HYPERKALAEMIA
     Dosage: 3IUAX PER DAY
     Route: 048
     Dates: start: 20101208, end: 20110126
  3. JUSO-JO [Concomitant]
     Indication: ACIDOSIS
     Route: 048
     Dates: start: 20101208, end: 20110126
  4. ALLOPURINOL [Concomitant]
     Indication: RHEUMATOID ARTHRITIS
     Dosage: 100MG PER DAY
     Route: 048
     Dates: start: 20101208, end: 20110126
  5. ENBREL [Concomitant]
     Indication: RHEUMATOID ARTHRITIS
     Route: 058
     Dates: start: 20100204
  6. LANSOPRAZOLE [Concomitant]
     Indication: GASTRITIS
     Dosage: 15MG PER DAY
     Route: 048
     Dates: start: 20101208

REACTIONS (3)
  - ALTERED STATE OF CONSCIOUSNESS [None]
  - DRUG LEVEL INCREASED [None]
  - TOXIC ENCEPHALOPATHY [None]
